FAERS Safety Report 19788970 (Version 1)
Quarter: 2021Q3

REPORT INFORMATION
  Report Type: Report from Study
  Country: US (occurrence: US)
  Receive Date: 20210904
  Receipt Date: 20210904
  Transmission Date: 20211014
  Serious: Yes (Other)
  Sender: FDA-Public Use
  Company Number: NVSC2021US196517

PATIENT
  Sex: Female

DRUGS (1)
  1. GLATOPA [Suspect]
     Active Substance: GLATIRAMER ACETATE
     Indication: PRODUCT USED FOR UNKNOWN INDICATION
     Dosage: 40 MG, UNKNOWN
     Route: 065

REACTIONS (4)
  - Arthropathy [Unknown]
  - Injection site mass [Unknown]
  - Necrosis [Unknown]
  - Decubitus ulcer [Unknown]
